FAERS Safety Report 17206229 (Version 2)
Quarter: 2020Q1

REPORT INFORMATION
  Report Type: Report from Study
  Country: TH (occurrence: TH)
  Receive Date: 20191227
  Receipt Date: 20200115
  Transmission Date: 20200409
  Serious: Yes (Other)
  Sender: FDA-Public Use
  Company Number: TH-SA-2019SA352033

PATIENT
  Age: 25 Year
  Sex: Male
  Weight: 41 kg

DRUGS (4)
  1. TEEVIR [Concomitant]
     Indication: ANTIRETROVIRAL THERAPY
     Dosage: 300/200/600 MG QD
     Route: 048
     Dates: start: 20191003
  2. ISONIAZID. [Suspect]
     Active Substance: ISONIAZID
     Indication: LATENT TUBERCULOSIS
     Dosage: 300 MG, QD
     Route: 048
     Dates: start: 20191004, end: 20191031
  3. PYRIDOXINE [Concomitant]
     Active Substance: PYRIDOXINE
     Indication: SUPPLEMENTATION THERAPY
     Dosage: 50 MG, QD
     Route: 048
     Dates: start: 20191004, end: 20191031
  4. RIFAPENTINE [Suspect]
     Active Substance: RIFAPENTINE
     Indication: LATENT TUBERCULOSIS
     Dosage: 450 MG, QD
     Route: 048
     Dates: start: 20191004, end: 20191031

REACTIONS (3)
  - Drug-induced liver injury [Recovering/Resolving]
  - Vomiting [Recovered/Resolved]
  - Nausea [Recovered/Resolved]

NARRATIVE: CASE EVENT DATE: 20191101
